FAERS Safety Report 8906191 (Version 1)
Quarter: 2012Q4

REPORT INFORMATION
  Report Type: Spontaneous
  Country: US (occurrence: None)
  Receive Date: 20121112
  Receipt Date: 20121112
  Transmission Date: 20130627
  Serious: Yes (Other)
  Sender: FDA-Public Use
  Company Number: None

PATIENT
  Age: 77 Year
  Sex: Female
  Weight: 54.89 kg

DRUGS (1)
  1. PROLIA [Suspect]

REACTIONS (9)
  - Myalgia [None]
  - Arthralgia [None]
  - Chest discomfort [None]
  - Pain in jaw [None]
  - Pyrexia [None]
  - Fatigue [None]
  - Decreased appetite [None]
  - Dyspnoea [None]
  - Blood creatinine increased [None]
